FAERS Safety Report 25926799 (Version 1)
Quarter: 2025Q4

REPORT INFORMATION
  Report Type: Spontaneous
  Country: US (occurrence: US)
  Receive Date: 20251015
  Receipt Date: 20251015
  Transmission Date: 20260117
  Serious: Yes (Other)
  Sender: Onesource Specialty Pharma
  Company Number: US-STRIDES ARCOLAB LIMITED-2025OS000518

PATIENT
  Age: 36 Year
  Sex: Female

DRUGS (10)
  1. MYCOPHENOLATE MOFETIL [Suspect]
     Active Substance: MYCOPHENOLATE MOFETIL
     Indication: Prophylaxis against transplant rejection
     Dosage: UNK, MAINTAINED ON
     Route: 065
  2. MYCOPHENOLATE MOFETIL [Suspect]
     Active Substance: MYCOPHENOLATE MOFETIL
     Indication: Immunosuppressant drug therapy
  3. TOLODODEKIN ALFA [Suspect]
     Active Substance: TOLODODEKIN ALFA
     Indication: Prophylaxis against transplant rejection
     Dosage: 1800 MILLIGRAM, FOUR TIMES IN A WEEK
     Route: 058
  4. IMMUNE GLOBULIN NOS [Suspect]
     Active Substance: IMMUNE GLOBULIN NOS
     Indication: Prophylaxis against transplant rejection
     Dosage: UNK
     Route: 042
  5. CAMPATH [Suspect]
     Active Substance: ALEMTUZUMAB
     Indication: Prophylaxis against transplant rejection
     Dosage: UNK, FOR INDUCTION
     Route: 065
  6. CAMPATH [Suspect]
     Active Substance: ALEMTUZUMAB
     Indication: Immunosuppressant drug therapy
  7. TACROLIMUS [Suspect]
     Active Substance: TACROLIMUS
     Indication: Prophylaxis against transplant rejection
     Dosage: UNK, GOAL 7-9NG/ML, MAINTAINED ON
     Route: 065
  8. TACROLIMUS [Suspect]
     Active Substance: TACROLIMUS
     Indication: Immunosuppressant drug therapy
  9. PREDNISONE [Suspect]
     Active Substance: PREDNISONE
     Indication: Prophylaxis against transplant rejection
     Dosage: UNK, TAPER, MAINTAINED ON
     Route: 065
  10. PREDNISONE [Suspect]
     Active Substance: PREDNISONE
     Indication: Immunosuppressant drug therapy

REACTIONS (1)
  - Drug ineffective [Unknown]
